FAERS Safety Report 16784461 (Version 1)
Quarter: 2019Q3

REPORT INFORMATION
  Report Type: Spontaneous
  Country: CA (occurrence: CA)
  Receive Date: 20190909
  Receipt Date: 20190909
  Transmission Date: 20191005
  Serious: Yes (Death, Other)
  Sender: FDA-Public Use
  Company Number: CA-AUROBINDO-AUR-APL-2019-058527

PATIENT

DRUGS (5)
  1. SANDOSTATIN [Suspect]
     Active Substance: OCTREOTIDE ACETATE
     Dosage: 60 MILLIGRAM, EVERY MONTH
     Route: 030
  2. ALDACTONE [Concomitant]
     Active Substance: SPIRONOLACTONE
     Indication: PRODUCT USED FOR UNKNOWN INDICATION
     Dosage: 25 MILLIGRAM, DAILY
     Route: 065
  3. SANDOSTATIN [Suspect]
     Active Substance: OCTREOTIDE ACETATE
     Indication: CARCINOID TUMOUR
     Dosage: 60 MILLIGRAM, EVERY 3 WEEKS
     Route: 030
  4. ALDACTONE [Concomitant]
     Active Substance: SPIRONOLACTONE
     Indication: PRODUCT USED FOR UNKNOWN INDICATION
     Dosage: 37.5 MILLIGRAM, DAILY
     Route: 065
  5. RAMIPRIL. [Suspect]
     Active Substance: RAMIPRIL
     Indication: PRODUCT USED FOR UNKNOWN INDICATION
     Dosage: UNK
     Route: 065

REACTIONS (35)
  - Cardiac failure congestive [Fatal]
  - Cardiac valve disease [Fatal]
  - Flushing [Fatal]
  - Malaise [Fatal]
  - Musculoskeletal pain [Fatal]
  - Oedema peripheral [Fatal]
  - Asthenia [Fatal]
  - Back pain [Fatal]
  - Diarrhoea [Fatal]
  - Hepatic failure [Fatal]
  - Decreased appetite [Fatal]
  - Second primary malignancy [Fatal]
  - Weight increased [Fatal]
  - Blood pressure systolic decreased [Fatal]
  - Bone cancer [Fatal]
  - Bone pain [Fatal]
  - Frequent bowel movements [Fatal]
  - Hypotension [Fatal]
  - Peripheral swelling [Fatal]
  - Ascites [Fatal]
  - Body temperature decreased [Fatal]
  - Duodenal obstruction [Fatal]
  - Malignant neoplasm progression [Fatal]
  - Nasopharyngitis [Fatal]
  - Pain in extremity [Fatal]
  - Peritoneal fluid analysis abnormal [Fatal]
  - Death [Fatal]
  - Blood pressure systolic increased [Fatal]
  - Fatigue [Fatal]
  - Syncope [Fatal]
  - Abdominal distension [Fatal]
  - Somnolence [Fatal]
  - Weight decreased [Fatal]
  - Blood pressure decreased [Fatal]
  - Inappropriate schedule of product administration [Fatal]
